FAERS Safety Report 10047675 (Version 1)
Quarter: 2014Q1

REPORT INFORMATION
  Report Type: Spontaneous
  Country: BR (occurrence: BR)
  Receive Date: 20140331
  Receipt Date: 20140331
  Transmission Date: 20141002
  Serious: Yes (Other)
  Sender: FDA-Public Use
  Company Number: BR-PFIZER INC-2014084721

PATIENT
  Age: 95 Year
  Sex: Female

DRUGS (1)
  1. XALATAN [Suspect]
     Dosage: 1 DROP IN EACH EYE, 2X/DAY
     Route: 047
     Dates: start: 20131224

REACTIONS (3)
  - Glaucoma [Unknown]
  - Cataract [Unknown]
  - Off label use [Not Recovered/Not Resolved]
